FAERS Safety Report 5622500-9 (Version None)
Quarter: 2008Q1

REPORT INFORMATION
  Report Type: 
  Country: None (occurrence: None)
  Receive Date: 20080211
  Receipt Date: 20080206
  Transmission Date: 20080703
  Serious: Yes (Other)
  Sender: FDA-Public Use
  Company Number: GB-MERCK-0802GBR00005

PATIENT
  Age: 67 Year
  Sex: Female

DRUGS (6)
  1. ZOCOR [Suspect]
     Route: 065
  2. ASPIRIN [Suspect]
     Route: 065
  3. BISOPROLOL FUMARATE [Suspect]
     Route: 065
  4. CLOPIDOGREL BISULFATE [Suspect]
     Route: 065
  5. PREGABALIN [Suspect]
     Indication: TRIGEMINAL NEURALGIA
     Route: 065
  6. RAMIPRIL [Suspect]
     Route: 065

REACTIONS (3)
  - DRUG INEFFECTIVE [None]
  - DRUG INTERACTION [None]
  - MYOCARDIAL INFARCTION [None]
